FAERS Safety Report 10094169 (Version 4)
Quarter: 2015Q3

REPORT INFORMATION
  Report Type: Report from Study
  Country: BE (occurrence: BE)
  Receive Date: 20140422
  Receipt Date: 20150907
  Transmission Date: 20151125
  Serious: Yes (Other)
  Sender: FDA-Public Use
  Company Number: BE-ROCHE-1380646

PATIENT
  Age: 37 Year
  Sex: Female

DRUGS (8)
  1. ULTRA K [Concomitant]
     Indication: HYPOKALAEMIA
     Dosage: ONCE, 2PILL
     Route: 065
     Dates: start: 20130403, end: 20130403
  2. TAVANIC [Concomitant]
     Active Substance: LEVOFLOXACIN
     Indication: NASOPHARYNGITIS
     Route: 065
     Dates: start: 20131019
  3. LEVOTHYROXINE. [Concomitant]
     Active Substance: LEVOTHYROXINE
     Indication: HYPOTHYROIDISM
     Route: 065
     Dates: start: 2003
  4. TRASTUZUMAB [Suspect]
     Active Substance: TRASTUZUMAB
     Indication: BREAST CANCER
     Route: 042
     Dates: start: 20121126
  5. TRASTUZUMAB EMTANSINE [Suspect]
     Active Substance: ADO-TRASTUZUMAB EMTANSINE
     Indication: BREAST CANCER
     Dosage: ON 28/FEB/2014, THE LAST DOSE PRIOR TO SAE- 3.6MG/KG INFUSION, CYCLE NUMBER 21
     Route: 042
     Dates: start: 20121130
  6. OROCAL D3 [Concomitant]
     Active Substance: CALCIUM CARBONATE\CHOLECALCIFEROL
     Indication: OSTEOPOROSIS
     Route: 065
     Dates: start: 2003
  7. NUROFEN [Concomitant]
     Active Substance: IBUPROFEN
     Indication: PHARYNGITIS
     Route: 065
     Dates: start: 201312
  8. CRESTOR [Concomitant]
     Active Substance: ROSUVASTATIN CALCIUM
     Indication: HYPERCHOLESTEROLAEMIA
     Route: 065
     Dates: start: 201310

REACTIONS (1)
  - Supraventricular tachycardia [Recovered/Resolved]

NARRATIVE: CASE EVENT DATE: 20131216
